FAERS Safety Report 8059524-0 (Version None)
Quarter: 2012Q1

REPORT INFORMATION
  Report Type: 
  Country: None (occurrence: None)
  Receive Date: 20120120
  Receipt Date: 20120118
  Transmission Date: 20120608
  Serious: Yes (Hospitalization)
  Sender: FDA-Public Use
  Company Number: SG-SANOFI-AVENTIS-2012SA003708

PATIENT
  Age: 84 Year
  Sex: Male

DRUGS (4)
  1. METRONIDAZOLE [Suspect]
     Route: 048
  2. AMOXICILLIN AND CLAVULANATE POTASSIUM [Suspect]
     Route: 048
  3. CEFTRIAXONE [Suspect]
     Route: 048
  4. ALFUZOSIN HYDROCHLORIDE [Suspect]
     Route: 048

REACTIONS (1)
  - STEVENS-JOHNSON SYNDROME [None]
